FAERS Safety Report 25742352 (Version 1)
Quarter: 2025Q3

REPORT INFORMATION
  Report Type: Spontaneous
  Country: US (occurrence: US)
  Receive Date: 20250829
  Receipt Date: 20250829
  Transmission Date: 20251021
  Serious: Yes (Death)
  Sender: NOVARTIS
  Company Number: US-002147023-NVSC2025US135541

PATIENT
  Age: 79 Year
  Sex: Male

DRUGS (1)
  1. PROMACTA [Suspect]
     Active Substance: ELTROMBOPAG OLAMINE
     Indication: Aplastic anaemia
     Dosage: 75 MG, QD (1 TIME A DAY)
     Route: 048
     Dates: start: 202211

REACTIONS (1)
  - Death [Fatal]

NARRATIVE: CASE EVENT DATE: 20250821
